FAERS Safety Report 20938863 (Version 1)
Quarter: 2022Q2

REPORT INFORMATION
  Report Type: Report from Study
  Country: US (occurrence: US)
  Receive Date: 20220609
  Receipt Date: 20220609
  Transmission Date: 20220721
  Serious: Yes (Hospitalization, Other)
  Sender: FDA-Public Use
  Company Number: US-CLOVIS ONCOLOGY-CLO-2022-000143

PATIENT
  Age: 74 Year
  Sex: Female

DRUGS (3)
  1. RUBRACA [Suspect]
     Active Substance: RUCAPARIB CAMSYLATE
     Indication: Fallopian tube cancer
     Dosage: 600 MILLIGRAM, BID
     Route: 048
     Dates: start: 202103
  2. RUBRACA [Suspect]
     Active Substance: RUCAPARIB CAMSYLATE
     Indication: Fallopian tube cancer
     Dosage: 300 MILLIGRAM, BID
     Route: 048
     Dates: start: 20220114
  3. RUBRACA [Suspect]
     Active Substance: RUCAPARIB CAMSYLATE
     Indication: Metastases to lymph nodes
     Dosage: 600 MILLIGRAM, BID
     Route: 048
     Dates: start: 20220115, end: 2022

REACTIONS (3)
  - Colon operation [Recovering/Resolving]
  - Positron emission tomogram abnormal [Unknown]
  - Nausea [Not Recovered/Not Resolved]

NARRATIVE: CASE EVENT DATE: 20210301
